FAERS Safety Report 5148403-4 (Version None)
Quarter: 2006Q4

REPORT INFORMATION
  Report Type: 
  Country: None (occurrence: None)
  Receive Date: 20061107
  Receipt Date: 20061030
  Transmission Date: 20070319
  Serious: Yes (Life-Threatening, Other)
  Sender: FDA-Public Use
  Company Number: GXKR2006GB06793

PATIENT
  Age: 79 Year
  Sex: Female

DRUGS (5)
  1. TRIMETHOPRIM [Suspect]
     Indication: URINARY TRACT INFECTION
     Dosage: 200 MG, BID, ORAL
     Route: 048
     Dates: start: 20060810, end: 20060812
  2. ADACAL (CARBAZOCHROME) [Concomitant]
  3. DOCUSATE (DOCUSATE) [Concomitant]
  4. RANITIDINE [Concomitant]
  5. SENNA (SENNA, SENNA ALEXANDRINA) [Concomitant]

REACTIONS (2)
  - BLOOD SODIUM DECREASED [None]
  - CONVULSION [None]
